FAERS Safety Report 25789764 (Version 4)
Quarter: 2025Q4

REPORT INFORMATION
  Report Type: Spontaneous
  Country: JP (occurrence: JP)
  Receive Date: 20250911
  Receipt Date: 20251210
  Transmission Date: 20260117
  Serious: Yes (Hospitalization)
  Sender: GLAXOSMITHKLINE
  Company Number: JP-GSK-JP2025106683

PATIENT
  Age: 66 Year
  Sex: Female
  Weight: 70 kg

DRUGS (16)
  1. NUCALA [Suspect]
     Active Substance: MEPOLIZUMAB
     Indication: Chronic rhinosinusitis with nasal polyps
     Dosage: 100 MG, Q4W
  2. NUCALA [Suspect]
     Active Substance: MEPOLIZUMAB
     Indication: Chronic eosinophilic rhinosinusitis
  3. XYZAL [Suspect]
     Active Substance: LEVOCETIRIZINE DIHYDROCHLORIDE
     Indication: Rhinitis allergic
     Dosage: 5 MG
  4. FLUTICASONE FUROATE [Suspect]
     Active Substance: FLUTICASONE FUROATE
     Indication: Rhinitis allergic
     Dosage: UNK, 2 SPRAYS PER DOSE
  5. DUPIXENT [Concomitant]
     Active Substance: DUPILUMAB
     Indication: Chronic rhinosinusitis with nasal polyps
     Dosage: 100 ML, Q2W, NUMBER OF DOSES FOR 3 TIMES
  6. PREDONINE [Concomitant]
     Active Substance: PREDNISOLONE
     Indication: Organising pneumonia
     Dosage: 30 ML
  7. PREDONINE [Concomitant]
     Active Substance: PREDNISOLONE
     Dosage: 25 ML
  8. PREDONINE [Concomitant]
     Active Substance: PREDNISOLONE
     Dosage: 20 ML
  9. PREDONINE [Concomitant]
     Active Substance: PREDNISOLONE
     Dosage: 15 ML
  10. PREDONINE [Concomitant]
     Active Substance: PREDNISOLONE
     Dosage: 12.5 ML
  11. PREDONINE [Concomitant]
     Active Substance: PREDNISOLONE
     Dosage: 10 ML
  12. PREDONINE [Concomitant]
     Active Substance: PREDNISOLONE
     Dosage: 7.5 ML
  13. PREDONINE [Concomitant]
     Active Substance: PREDNISOLONE
     Dosage: 5 ML
  14. PREDONINE [Concomitant]
     Active Substance: PREDNISOLONE
     Dosage: 2.5 ML
  15. MONTELUKAST [Concomitant]
     Active Substance: MONTELUKAST
     Indication: Rhinitis allergic
     Dosage: 10 MG
  16. MIYA-BM [Concomitant]
     Active Substance: CLOSTRIDIUM BUTYRICUM SPORES STRAIN M-55
     Indication: Diarrhoea
     Dosage: 1 TO 2 TABS, QD

REACTIONS (3)
  - Malaise [Recovered/Resolved]
  - Face oedema [Recovered/Resolved]
  - Headache [Recovered/Resolved]

NARRATIVE: CASE EVENT DATE: 20250917
